FAERS Safety Report 5549477-9 (Version None)
Quarter: 2007Q4

REPORT INFORMATION
  Report Type: 
  Country: None (occurrence: None)
  Receive Date: 20071212
  Receipt Date: 20071204
  Transmission Date: 20080405
  Serious: Yes (Hospitalization)
  Sender: FDA-Public Use
  Company Number: PHEH2007US15657

PATIENT
  Age: 67 Year
  Sex: Male

DRUGS (12)
  1. LEVAQUIN [Concomitant]
  2. DOXEPIN HCL [Concomitant]
     Indication: INSOMNIA
     Dosage: 25 MG, QD
     Dates: start: 20040801
  3. ASPIRIN [Concomitant]
     Dosage: 81 MG, QD
     Dates: start: 20030801
  4. ACETYLSALICYLIC ACID SRT [Concomitant]
     Indication: CORONARY ARTERY DISEASE
     Dosage: 325 MG, QD
     Dates: start: 20060915
  5. CRESTOR [Concomitant]
     Indication: CORONARY ARTERY DISEASE
     Dosage: 10 MG, QD
     Dates: start: 20060401
  6. PLAVIX [Concomitant]
     Indication: CORONARY ARTERY DISEASE
     Dosage: 75 MG, QD
     Dates: start: 20060915
  7. TAMSULOSIN HCL [Concomitant]
     Indication: BENIGN PROSTATIC HYPERPLASIA
     Dosage: 0.4 MG, QD
     Dates: start: 20060914
  8. CALCIUM [Concomitant]
     Dosage: UNK, QD
     Dates: start: 20030801
  9. VITAMIN CAP [Concomitant]
     Dates: start: 20030801
  10. ADVIL LIQUI-GELS [Concomitant]
     Dosage: 400 MG, QD
     Dates: start: 20050501
  11. ISTRADEFYLLINE (KW-6002) INVESTIGATIONAL DRUG [Suspect]
     Indication: PARKINSON'S DISEASE
  12. STALEVO 100 [Suspect]
     Indication: PARKINSON'S DISEASE
     Dosage: 100 MG, TID
     Route: 048
     Dates: start: 20070414, end: 20070830

REACTIONS (23)
  - ABDOMINAL DISTENSION [None]
  - ASTHENIA [None]
  - BARRETT'S OESOPHAGUS [None]
  - BIOPSY STOMACH [None]
  - BLOOD AMYLASE INCREASED [None]
  - BLOOD GLUCOSE ABNORMAL [None]
  - BLOOD GLUCOSE INCREASED [None]
  - BLOOD PRESSURE DECREASED [None]
  - CACHEXIA [None]
  - COMPUTERISED TOMOGRAM ABNORMAL [None]
  - DEFAECATION URGENCY [None]
  - DEHYDRATION [None]
  - DIARRHOEA [None]
  - DIZZINESS [None]
  - ENDOSCOPY UPPER GASTROINTESTINAL TRACT ABNORMAL [None]
  - GASTRITIS [None]
  - GASTROINTESTINAL MOTILITY DISORDER [None]
  - HIATUS HERNIA [None]
  - MUCOSAL HAEMORRHAGE [None]
  - NAUSEA [None]
  - NUCLEAR MAGNETIC RESONANCE IMAGING ABNORMAL [None]
  - PANCREATIC CYST [None]
  - WEIGHT DECREASED [None]
